FAERS Safety Report 8775811 (Version 1)
Quarter: 2012Q4

REPORT INFORMATION
  Report Type: 
  Country: US (occurrence: US)
  Receive Date: 20120910
  Receipt Date: 20120910
  Transmission Date: 20130627
  Serious: Yes (Other)
  Sender: FDA-Public Use
  Company Number: US-PERRIGO-12US007640

PATIENT
  Sex: Male
  Weight: 63.95 kg

DRUGS (8)
  1. IBUPROFEN [Suspect]
     Indication: PAIN
     Dosage: 800 to 1600 mg, daily
     Route: 048
  2. KLONOPIN [Concomitant]
     Indication: TOURETTE^S DISORDER
     Dosage: 1 mg to 2 mg, qd
     Route: 048
     Dates: start: 201112
  3. PROBIOTIC [Concomitant]
     Indication: SUPPLEMENTATION THERAPY
     Dosage: UNK, UNK
     Route: 048
     Dates: start: 201205
  4. POTASSIUM GLUCONATE [Concomitant]
     Indication: HYPOKALAEMIA
     Dosage: 99 mg, qd
     Route: 048
     Dates: start: 20120816
  5. VITAMIN D3 [Concomitant]
     Indication: VITAMIN D DEFICIENCY
     Dosage: 400 IU, UNK
     Route: 048
     Dates: start: 20120816
  6. OCEAN NASAL [Concomitant]
     Indication: SINUS DISORDER
     Dosage: UNK, UNK
     Route: 045
     Dates: start: 201205, end: 20120825
  7. NASAL PREPARATIONS [Concomitant]
     Indication: SINUS DISORDER
     Dosage: UNK, UNK
     Route: 045
     Dates: start: 201203, end: 201203
  8. SALINE NASAL SPRAY [Concomitant]
     Indication: SINUS DISORDER
     Dosage: 1 stream in each nostril, single
     Route: 045
     Dates: start: 20120826, end: 20120826

REACTIONS (6)
  - Renal impairment [Unknown]
  - Nephrolithiasis [Unknown]
  - Creatinine renal clearance decreased [Not Recovered/Not Resolved]
  - Blood creatinine increased [Not Recovered/Not Resolved]
  - Overdose [Not Recovered/Not Resolved]
  - Incorrect drug administration duration [Not Recovered/Not Resolved]
